FAERS Safety Report 8410738-7 (Version None)
Quarter: 2012Q2

REPORT INFORMATION
  Report Type: 
  Country: None (occurrence: None)
  Receive Date: 20120605
  Receipt Date: 20120523
  Transmission Date: 20120825
  Serious: Yes (Other)
  Sender: FDA-Public Use
  Company Number: BR-NOVOPROD-352466

PATIENT
  Age: 53 Year
  Sex: Male

DRUGS (2)
  1. NOVOLIN R [Suspect]
     Dosage: UNK
     Route: 065
  2. LEVEMIR [Suspect]
     Indication: PRODUCT USED FOR UNKNOWN INDICATION
     Dosage: UNK
     Route: 065

REACTIONS (3)
  - RENAL TRANSPLANT [None]
  - VISUAL IMPAIRMENT [None]
  - DRUG INEFFECTIVE [None]
